FAERS Safety Report 7629405-2 (Version None)
Quarter: 2011Q3

REPORT INFORMATION
  Report Type: 
  Country: None (occurrence: None)
  Receive Date: 20110722
  Receipt Date: 20110708
  Transmission Date: 20111222
  Serious: Yes (Other)
  Sender: FDA-Public Use
  Company Number: US-BAYER-2011-060495

PATIENT
  Age: 33 Year
  Sex: Female
  Weight: 66 kg

DRUGS (3)
  1. IBUPROFEN (ADVIL) [Concomitant]
  2. ALEVE (CAPLET) [Suspect]
     Indication: TOOTHACHE
     Dosage: 3 DF, UNK
     Route: 048
     Dates: start: 20110708
  3. ANTIBIOTICS [Concomitant]
     Indication: TOOTHACHE

REACTIONS (2)
  - CARDIAC FLUTTER [None]
  - TOOTHACHE [None]
